FAERS Safety Report 6696364-9 (Version None)
Quarter: 2010Q2

REPORT INFORMATION
  Report Type: 
  Country: None (occurrence: None)
  Receive Date: 20100426
  Receipt Date: 20100409
  Transmission Date: 20101027
  Serious: Yes (Hospitalization)
  Sender: FDA-Public Use
  Company Number: FR-ROCHE-496890

PATIENT
  Sex: Female

DRUGS (10)
  1. CAPECITABINE [Suspect]
     Indication: METASTATIC GASTRIC CANCER
     Dosage: FROM DAYS TWO TO FIFTEEN OF A THREE WEEK CYCLE.
     Route: 048
  2. EPIRUBICIN [Suspect]
     Indication: METASTATIC GASTRIC CANCER
     Route: 042
  3. CISPLATIN [Suspect]
     Indication: METASTATIC GASTRIC CANCER
     Route: 042
  4. LANSOPRAZOLE [Concomitant]
     Indication: PROPHYLAXIS AGAINST GASTROINTESTINAL ULCER
     Dosage: 1 TABLET AT NIGHT
     Route: 048
  5. FUNGIZONE [Concomitant]
     Indication: ANTIFUNGAL PROPHYLAXIS
     Route: 048
  6. BICARBONATE [Concomitant]
  7. LANOSIL [Concomitant]
  8. AMITRIPTYLINE HCL [Concomitant]
     Indication: DEPRESSION
     Dosage: 1 TABLET AT NIGHT
     Route: 048
  9. LOVENOX [Concomitant]
     Dosage: 1 INJECTION/DAY AT NIGHT
  10. LANSOYL [Concomitant]
     Indication: CONSTIPATION
     Dosage: DOSE: 1 DOSE PER DAY IN MORNING

REACTIONS (1)
  - LUNG DISORDER [None]
